FAERS Safety Report 16760632 (Version 1)
Quarter: 2019Q4

REPORT INFORMATION
  Report Type: Spontaneous
  Country: US (occurrence: US)
  Receive Date: 20190830
  Receipt Date: 20190830
  Transmission Date: 20200122
  Serious: Yes (Hospitalization)
  Sender: FDA-Public Use
  Company Number: None

PATIENT
  Age: 54 Year
  Sex: Female

DRUGS (15)
  1. PERCOCET [Concomitant]
     Active Substance: ACETAMINOPHEN\OXYCODONE HYDROCHLORIDE
     Dates: start: 20190830
  2. MELATONIN [Concomitant]
     Active Substance: MELATONIN
     Dates: start: 20190610
  3. VITAMIN D [Concomitant]
     Active Substance: VITAMIN D NOS
     Dates: start: 20190610
  4. TRAMADOL HCL [Concomitant]
     Active Substance: TRAMADOL HYDROCHLORIDE
     Dates: start: 20190610
  5. TYLENOL [Concomitant]
     Active Substance: ACETAMINOPHEN
     Dates: start: 20190610
  6. DALFAMPRIDINE. [Suspect]
     Active Substance: DALFAMPRIDINE
     Indication: MULTIPLE SCLEROSIS
     Dosage: ?          OTHER FREQUENCY:TWICE DAILY;?
     Route: 048
     Dates: start: 20181128
  7. MAGNESIUM [Concomitant]
     Active Substance: MAGNESIUM
     Dates: start: 20190610
  8. BACLOFEN. [Concomitant]
     Active Substance: BACLOFEN
     Dates: start: 20190610
  9. CYCLOBENZAPR [Concomitant]
     Active Substance: CYCLOBENZAPRINE
     Dates: start: 20181206
  10. IMITREX [Concomitant]
     Active Substance: SUMATRIPTAN SUCCINATE
     Dates: start: 20190610
  11. LOSARTAN/HCT [Concomitant]
     Active Substance: HYDROCHLOROTHIAZIDE\LOSARTAN POTASSIUM
     Dates: start: 20180606
  12. MULTIVITAMIN [Concomitant]
     Active Substance: VITAMINS
     Dates: start: 20181206
  13. CAL-MAG-ZINC [Concomitant]
     Dates: start: 20190830
  14. CELEBREX [Concomitant]
     Active Substance: CELECOXIB
     Dates: start: 20190610
  15. GILENYA [Concomitant]
     Active Substance: FINGOLIMOD HYDROCHLORIDE
     Dates: start: 20190607

REACTIONS (2)
  - Intervertebral disc protrusion [None]
  - Therapy cessation [None]

NARRATIVE: CASE EVENT DATE: 20190821
